FAERS Safety Report 5353601-0 (Version None)
Quarter: 2007Q2

REPORT INFORMATION
  Report Type: 
  Country: None (occurrence: None)
  Receive Date: 20070608
  Receipt Date: 20070525
  Transmission Date: 20071010
  Serious: Yes (Life-Threatening, Hospitalization)
  Sender: FDA-Public Use
  Company Number: POMP-11071

PATIENT
  Age: 57 Year
  Sex: Male
  Weight: 98 kg

DRUGS (2)
  1. MYOZYME [Suspect]
     Indication: GLYCOGEN STORAGE DISEASE TYPE II
     Dosage: 20 MG/KG Q2WKS IV
     Route: 042
     Dates: start: 20070510
  2. MUCOMYST [Concomitant]

REACTIONS (6)
  - COUGH [None]
  - DRUG HYPERSENSITIVITY [None]
  - DYSPNOEA [None]
  - FATIGUE [None]
  - LUNG INFECTION [None]
  - PULMONARY CONGESTION [None]
